FAERS Safety Report 4666828-8 (Version None)
Quarter: 2005Q2

REPORT INFORMATION
  Report Type: 
  Country: None (occurrence: None)
  Receive Date: 20050519
  Receipt Date: 20041216
  Transmission Date: 20051028
  Serious: Yes (Death, Hospitalization)
  Sender: FDA-Public Use
  Company Number: US-MERCK-0412USA02131

PATIENT
  Age: 62 Year
  Sex: Male
  Weight: 91 kg

DRUGS (15)
  1. VIOXX [Suspect]
     Indication: RHEUMATOID ARTHRITIS
     Route: 048
     Dates: start: 20020501, end: 20021125
  2. VIOXX [Suspect]
     Indication: BACK PAIN
     Route: 048
     Dates: start: 20020501, end: 20021125
  3. VASOTEC [Concomitant]
     Route: 065
  4. PROZAC [Concomitant]
     Route: 065
  5. ASPIRIN [Concomitant]
     Route: 065
     Dates: start: 19930101, end: 20021125
  6. NORVASC [Concomitant]
     Route: 065
     Dates: start: 20020925, end: 20021105
  7. XANAX [Concomitant]
     Route: 065
  8. TYLENOL W/ CODEINE NO. 3 [Concomitant]
     Route: 065
     Dates: start: 20020501, end: 20021125
  9. COUMADIN [Concomitant]
     Route: 065
     Dates: start: 20020912, end: 20021125
  10. LASIX [Concomitant]
     Route: 065
     Dates: start: 19930101, end: 20021125
  11. AVANDIA [Concomitant]
     Route: 065
  12. ROXICODONE [Concomitant]
     Route: 065
     Dates: start: 20010101, end: 20021125
  13. IBUPROFEN [Concomitant]
     Route: 065
     Dates: start: 20010101, end: 20021125
  14. PRAVACHOL [Concomitant]
     Route: 065
     Dates: start: 20010203, end: 20021105
  15. PRAVACHOL [Concomitant]
     Route: 065
     Dates: start: 20010203, end: 20021105

REACTIONS (10)
  - ANXIETY [None]
  - BLOOD TRIGLYCERIDES INCREASED [None]
  - CARDIAC FAILURE CONGESTIVE [None]
  - CEREBROVASCULAR ACCIDENT [None]
  - DEPRESSION [None]
  - DIABETES MELLITUS [None]
  - HERNIA [None]
  - HYPERTENSION [None]
  - LOW DENSITY LIPOPROTEIN INCREASED [None]
  - MYOCARDIAL INFARCTION [None]
